FAERS Safety Report 23582743 (Version 1)
Quarter: 2024Q1

REPORT INFORMATION
  Report Type: Spontaneous
  Country: FR (occurrence: FR)
  Receive Date: 20240229
  Receipt Date: 20240229
  Transmission Date: 20240410
  Serious: Yes (Hospitalization)
  Sender: FDA-Public Use
  Company Number: FR-BoehringerIngelheim-2024-BI-011246

PATIENT
  Age: 70 Year
  Sex: Male
  Weight: 125 kg

DRUGS (11)
  1. CLONIDINE [Suspect]
     Active Substance: CLONIDINE
     Indication: Hypertension
     Dosage: CLONIDINE
     Dates: start: 20210309, end: 20210310
  2. CILASTATIN [Suspect]
     Active Substance: CILASTATIN
     Indication: Peritonitis
     Route: 042
     Dates: start: 20210309, end: 20210311
  3. CILASTATIN [Suspect]
     Active Substance: CILASTATIN
     Indication: Upper aerodigestive tract infection
  4. VANCOMYCIN [Suspect]
     Active Substance: VANCOMYCIN
     Indication: Peritonitis
     Route: 042
     Dates: start: 20210309, end: 20210311
  5. VANCOMYCIN [Suspect]
     Active Substance: VANCOMYCIN
     Indication: Upper aerodigestive tract infection
  6. CASPOFUNGIN [Suspect]
     Active Substance: CASPOFUNGIN
     Indication: Fungal infection
     Route: 042
     Dates: start: 20210310, end: 20210311
  7. CASPOFUNGIN [Suspect]
     Active Substance: CASPOFUNGIN
     Indication: Peritonitis
  8. PERFALGAN [Concomitant]
     Active Substance: ACETAMINOPHEN
     Indication: Product used for unknown indication
  9. HEPARIN SODIUM [Concomitant]
     Active Substance: HEPARIN SODIUM
     Indication: Product used for unknown indication
  10. NOREPINEPHRINE [Concomitant]
     Active Substance: NOREPINEPHRINE\NOREPINEPHRINE BITARTRATE
     Indication: Product used for unknown indication
  11. PANTOPRAZOLE [Concomitant]
     Active Substance: PANTOPRAZOLE
     Indication: Product used for unknown indication

REACTIONS (3)
  - Eosinophilia [Recovered/Resolved]
  - Dermatitis exfoliative generalised [Recovered/Resolved]
  - Henoch-Schonlein purpura [Recovered/Resolved]

NARRATIVE: CASE EVENT DATE: 20210310
